FAERS Safety Report 24442992 (Version 2)
Quarter: 2025Q3

REPORT INFORMATION
  Report Type: Report from Study
  Country: AU (occurrence: AU)
  Receive Date: 20241016
  Receipt Date: 20250802
  Transmission Date: 20251021
  Serious: Yes (Disabling, Other)
  Sender: ALEXION PHARMACEUTICALS
  Company Number: AU-AstraZeneca-2024A213318

PATIENT
  Age: 63 Year
  Sex: Male

DRUGS (1)
  1. OSIMERTINIB [Suspect]
     Active Substance: OSIMERTINIB
     Indication: Non-small cell lung cancer
     Dosage: 80 MILLIGRAM, QD
     Dates: start: 20220405

REACTIONS (1)
  - Cornea verticillata [Unknown]

NARRATIVE: CASE EVENT DATE: 20240909
